FAERS Safety Report 11437817 (Version 1)
Quarter: 2015Q3

REPORT INFORMATION
  Report Type: Spontaneous
  Country: US (occurrence: US)
  Receive Date: 20150831
  Receipt Date: 20150831
  Transmission Date: 20151125
  Serious: Yes (Other)
  Sender: FDA-Public Use
  Company Number: US-TEVA-589763USA

PATIENT
  Age: 82 Year
  Sex: Male

DRUGS (3)
  1. LOTEPREDNOL ETABONATE [Concomitant]
     Active Substance: LOTEPREDNOL ETABONATE
     Indication: MACULAR DEGENERATION
     Dosage: 0.5% ONCE DAILY OU
     Route: 061
  2. ALPROSTADIL. [Suspect]
     Active Substance: ALPROSTADIL
     Indication: ERECTILE DYSFUNCTION
     Route: 017
  3. BROMFENAC [Concomitant]
     Active Substance: BROMFENAC SODIUM
     Indication: MACULAR DEGENERATION
     Dosage: 0.09% ONCE DAILY OU
     Route: 047

REACTIONS (1)
  - Macular oedema [Recovered/Resolved]
